FAERS Safety Report 9115920 (Version 4)
Quarter: 2014Q1

REPORT INFORMATION
  Report Type: Spontaneous
  Country: JP (occurrence: JP)
  Receive Date: 20130225
  Receipt Date: 20140114
  Transmission Date: 20141002
  Serious: Yes (Hospitalization)
  Sender: FDA-Public Use
  Company Number: JP-GLAXOSMITHKLINE-B0869839A

PATIENT
  Age: 79 Year
  Sex: Female

DRUGS (11)
  1. VALTREX [Suspect]
     Indication: HERPES ZOSTER
     Dosage: 1000MG THREE TIMES PER DAY
     Route: 048
     Dates: start: 20130212, end: 20130214
  2. ZOVIRAX 5% [Suspect]
     Indication: HERPES SIMPLEX
     Route: 061
     Dates: start: 20130213, end: 20130214
  3. CRAVIT [Concomitant]
     Route: 031
     Dates: start: 20130213
  4. METHYCOBAL [Concomitant]
     Route: 065
  5. GASMOTIN [Concomitant]
     Route: 048
  6. EXFORGE [Concomitant]
     Route: 048
  7. CRESTOR [Concomitant]
     Route: 048
  8. EPADEL [Concomitant]
     Route: 048
  9. SERMION [Concomitant]
     Route: 048
  10. OMEPRAL [Concomitant]
     Route: 065
  11. CIRCULETIN [Concomitant]
     Route: 048

REACTIONS (9)
  - Renal failure acute [Recovering/Resolving]
  - Tubulointerstitial nephritis [Unknown]
  - Oliguria [Unknown]
  - Nausea [Unknown]
  - Decreased appetite [Unknown]
  - Vomiting [Unknown]
  - Malaise [Unknown]
  - Gait disturbance [Unknown]
  - Weight increased [Unknown]
